FAERS Safety Report 21818813 (Version 1)
Quarter: 2023Q1

REPORT INFORMATION
  Report Type: Spontaneous
  Country: US (occurrence: US)
  Receive Date: 20230104
  Receipt Date: 20230104
  Transmission Date: 20230417
  Serious: Yes (Death, Hospitalization)
  Sender: FDA-Public Use
  Company Number: US-MYLANLABS-2022M1140896

PATIENT
  Age: 61 Year
  Sex: Female

DRUGS (6)
  1. EPINEPHRINE [Suspect]
     Active Substance: EPINEPHRINE
     Indication: Cardiac arrest
     Dosage: UNK
     Route: 065
  2. EPINEPHRINE [Suspect]
     Active Substance: EPINEPHRINE
     Indication: Resuscitation
  3. AMIODARONE [Suspect]
     Active Substance: AMIODARONE
     Indication: Cardiac arrest
     Dosage: UNK
     Route: 065
  4. AMIODARONE [Suspect]
     Active Substance: AMIODARONE
     Indication: Ventricular fibrillation
  5. SODIUM BICARBONATE [Suspect]
     Active Substance: SODIUM BICARBONATE
     Indication: Cardiac arrest
     Dosage: UNK
     Route: 065
  6. SODIUM BICARBONATE [Suspect]
     Active Substance: SODIUM BICARBONATE
     Indication: Ventricular fibrillation

REACTIONS (1)
  - Drug ineffective [Fatal]
